FAERS Safety Report 16151185 (Version 1)
Quarter: 2019Q2

REPORT INFORMATION
  Report Type: Spontaneous
  Country: US (occurrence: US)
  Receive Date: 20190403
  Receipt Date: 20190403
  Transmission Date: 20190711
  Serious: No
  Sender: FDA-Public Use
  Company Number: US-TEVA-2019-US-1030918

PATIENT
  Sex: Female

DRUGS (2)
  1. PREDNISONE TABLET TEVA [Suspect]
     Active Substance: PREDNISONE
     Indication: CHRONIC OBSTRUCTIVE PULMONARY DISEASE
     Dosage: 25 MILLIGRAM DAILY;
     Route: 065
  2. ALBUTEROL NEBULIZER [Concomitant]
     Active Substance: ALBUTEROL
     Route: 065

REACTIONS (3)
  - Gastrointestinal pain [Unknown]
  - Diarrhoea [Unknown]
  - Dyspnoea [Unknown]
